FAERS Safety Report 21885538 (Version 1)
Quarter: 2023Q1

REPORT INFORMATION
  Report Type: Spontaneous
  Country: BE (occurrence: BE)
  Receive Date: 20230119
  Receipt Date: 20230119
  Transmission Date: 20230418
  Serious: Yes (Other)
  Sender: FDA-Public Use
  Company Number: None

PATIENT
  Age: 75 Year
  Sex: Male
  Weight: 76 kg

DRUGS (1)
  1. VANCOMYCIN [Suspect]
     Active Substance: VANCOMYCIN
     Indication: Device related infection
     Dosage: UNK, TDM11/3/21: START VANCOMYCIN THERAPY DUE TO
     Route: 042
     Dates: start: 20210311, end: 20210617

REACTIONS (2)
  - Neutrophil percentage decreased [Recovered/Resolved]
  - Neutropenia [Recovered/Resolved]
